FAERS Safety Report 4320845-6 (Version None)
Quarter: 2004Q1

REPORT INFORMATION
  Report Type: 
  Country: None (occurrence: None)
  Receive Date: 20040318
  Receipt Date: 20040227
  Transmission Date: 20041129
  Serious: Yes (Hospitalization)
  Sender: FDA-Public Use
  Company Number: WAES 0402USC00003

PATIENT
  Age: 68 Year
  Sex: Female

DRUGS (5)
  1. FOSAMAX [Suspect]
     Indication: OSTEOPOROSIS
     Dosage: 70 MG/WKY/PO
     Route: 048
     Dates: start: 20040205, end: 20040213
  2. CALCIUM CARBONATE [Concomitant]
  3. CITALOPRAM HYDROBROMIDE [Concomitant]
  4. INSULIN HUMAN, ISOPHANE [Concomitant]
  5. METHENAMINE [Concomitant]

REACTIONS (27)
  - ABDOMINAL PAIN [None]
  - ADRENAL ADENOMA [None]
  - AORTIC VALVE INCOMPETENCE [None]
  - AORTIC VALVE SCLEROSIS [None]
  - BLOOD GLUCOSE INCREASED [None]
  - CARDIAC DISORDER [None]
  - CARDIOMEGALY [None]
  - CHEST WALL PAIN [None]
  - DEHYDRATION [None]
  - DILATATION ATRIAL [None]
  - FALL [None]
  - HIATUS HERNIA [None]
  - HYPERTENSION [None]
  - HYPOKALAEMIA [None]
  - IMPAIRED GASTRIC EMPTYING [None]
  - INTERCOSTAL NEURALGIA [None]
  - MITRAL VALVE CALCIFICATION [None]
  - MITRAL VALVE INCOMPETENCE [None]
  - NAUSEA [None]
  - NEUROPATHIC PAIN [None]
  - NEUROPATHY PERIPHERAL [None]
  - PAIN [None]
  - PERICARDIAL EFFUSION [None]
  - RENAL CYST [None]
  - RETCHING [None]
  - SYNCOPE [None]
  - TRICUSPID VALVE INCOMPETENCE [None]
